FAERS Safety Report 9913069 (Version 2)
Quarter: 2014Q2

REPORT INFORMATION
  Report Type: Spontaneous
  Country: IT (occurrence: None)
  Receive Date: 20140214
  Receipt Date: 20140414
  Transmission Date: 20141212
  Serious: Yes (Other)
  Sender: FDA-Public Use
  Company Number: AUR-APL-2014-01491

PATIENT
  Age: 82 Year
  Sex: Female

DRUGS (3)
  1. ATENOLOL [Suspect]
     Indication: PRODUCT USED FOR UNKNOWN INDICATION
     Dates: start: 20130101, end: 20131210
  2. PREVEX [Concomitant]
  3. CARDIRENE (ACETYLSALICYLATE LYSINE) [Concomitant]

REACTIONS (1)
  - Presyncope [None]
